FAERS Safety Report 8455838 (Version 2)
Quarter: 2015Q4

REPORT INFORMATION
  Report Type: Spontaneous
  Country: JP (occurrence: JP)
  Receive Date: 20120313
  Receipt Date: 20151112
  Transmission Date: 20160305
  Serious: Yes (Death, Other)
  Sender: FDA-Public Use
  Company Number: JP-PFIZER INC-2010048007

PATIENT
  Age: 83 Year
  Sex: Male
  Weight: 61 kg

DRUGS (11)
  1. NEUTROGIN [Concomitant]
     Active Substance: LENOGRASTIM
     Indication: INFECTION
     Dosage: UNK
     Route: 058
     Dates: start: 200901, end: 20090216
  2. VFEND [Suspect]
     Active Substance: VORICONAZOLE
     Indication: SCEDOSPORIUM INFECTION
     Dosage: 200 MG, 1X/DAY
     Route: 048
     Dates: start: 20090206, end: 20090206
  3. NEUTROGIN [Concomitant]
     Active Substance: LENOGRASTIM
     Indication: NEUTROPENIA
  4. VFEND [Suspect]
     Active Substance: VORICONAZOLE
     Dosage: 200 MG, 2X/DAY
     Route: 048
     Dates: start: 20090226, end: 20090304
  5. MINOCYCLINE\MINOCYCLINE HYDROCHLORIDE [Concomitant]
     Active Substance: MINOCYCLINE\MINOCYCLINE HYDROCHLORIDE
     Indication: INFECTION
     Dosage: UNK
     Route: 042
     Dates: start: 20090127, end: 20090307
  6. ZOSYN [Concomitant]
     Active Substance: PIPERACILLIN SODIUM\TAZOBACTAM SODIUM
     Indication: INFECTION
     Dosage: UNK
     Route: 042
     Dates: start: 20090206, end: 20090303
  7. PASIL [Concomitant]
     Active Substance: PAZUFLOXACIN MESILATE
     Indication: INFECTION
     Dosage: UNK
     Route: 042
     Dates: start: 20090130, end: 20090206
  8. PLATELETS [Concomitant]
     Active Substance: HUMAN PLATELET, ALLOGENIC
     Dosage: 10 UNITS
     Dates: start: 20090214, end: 20090214
  9. MEROPEN [Concomitant]
     Active Substance: MEROPENEM
     Indication: INFECTION
     Dosage: UNK
     Route: 042
     Dates: start: 20090129, end: 20090206
  10. VFEND [Suspect]
     Active Substance: VORICONAZOLE
     Dosage: 200 MG, 2X/DAY
     Route: 048
     Dates: start: 20090207, end: 20090213
  11. TARGOCID [Concomitant]
     Active Substance: TEICOPLANIN
     Indication: INFECTION
     Dosage: UNK
     Route: 042
     Dates: start: 20090206, end: 20090325

REACTIONS (3)
  - Hallucination, visual [Recovered/Resolved]
  - Drug ineffective [Fatal]
  - Hallucination [Recovered/Resolved]

NARRATIVE: CASE EVENT DATE: 20090208
